FAERS Safety Report 8831320 (Version 1)
Quarter: 2012Q4

REPORT INFORMATION
  Report Type: Report from Study
  Country: CA (occurrence: CA)
  Receive Date: 20121009
  Receipt Date: 20121009
  Transmission Date: 20130627
  Serious: Yes (Other)
  Sender: FDA-Public Use
  Company Number: CA-JNJFOC-20120912677

PATIENT
  Age: 52 Year
  Sex: Female
  Weight: 101 kg

DRUGS (9)
  1. REMICADE [Suspect]
     Indication: CROHN^S DISEASE
     Route: 042
     Dates: start: 20120816
  2. GABAPENTIN [Concomitant]
     Route: 065
  3. IRBESARTAN [Concomitant]
     Route: 065
  4. ELAVIL [Concomitant]
     Route: 065
  5. CITALOPRAM [Concomitant]
     Route: 065
  6. CRESTOR [Concomitant]
     Route: 065
  7. ONGLYZA [Concomitant]
     Route: 065
  8. METHOTREXATE [Concomitant]
     Route: 065
  9. FERROUS GLUCONATE [Concomitant]
     Route: 065

REACTIONS (4)
  - Haematochezia [Not Recovered/Not Resolved]
  - Pain [Not Recovered/Not Resolved]
  - Fatigue [Not Recovered/Not Resolved]
  - Insomnia [Not Recovered/Not Resolved]
